FAERS Safety Report 18170262 (Version 1)
Quarter: 2020Q3

REPORT INFORMATION
  Report Type: Spontaneous
  Country: GB (occurrence: GB)
  Receive Date: 20200819
  Receipt Date: 20200819
  Transmission Date: 20201103
  Serious: Yes (Hospitalization, Other)
  Sender: FDA-Public Use
  Company Number: GB-PFIZER INC-2020319735

PATIENT
  Age: 74 Year
  Sex: Male

DRUGS (3)
  1. PEMBROLIZUMAB. [Suspect]
     Active Substance: PEMBROLIZUMAB
     Dosage: UNK
     Route: 042
     Dates: start: 20200722
  2. PACLITAXEL. [Suspect]
     Active Substance: PACLITAXEL
     Dosage: UNK
     Route: 042
     Dates: start: 20200722
  3. CARBOPLATIN. [Suspect]
     Active Substance: CARBOPLATIN
     Dosage: UNK
     Route: 042
     Dates: start: 20200722

REACTIONS (4)
  - Productive cough [Recovering/Resolving]
  - Pneumonia [Recovering/Resolving]
  - Dyspnoea [Recovering/Resolving]
  - Mucosal inflammation [Recovering/Resolving]
